FAERS Safety Report 8979723 (Version 1)
Quarter: 2012Q4

REPORT INFORMATION
  Report Type: 
  Country: FR (occurrence: FR)
  Receive Date: 20121221
  Receipt Date: 20121221
  Transmission Date: 20130627
  Serious: Yes (Death, Life-Threatening)
  Sender: FDA-Public Use
  Company Number: FR-ASTRAZENECA-2012SE94185

PATIENT
  Age: 59 Year
  Sex: Male

DRUGS (2)
  1. DIPRIVAN [Suspect]
     Route: 042
     Dates: start: 20121129, end: 20121129
  2. CELOCURIN [Suspect]
     Route: 042
     Dates: start: 20121129, end: 20121129

REACTIONS (3)
  - Anaphylactic shock [Fatal]
  - Cardiogenic shock [Fatal]
  - Cardio-respiratory arrest [Fatal]
